FAERS Safety Report 10180852 (Version 1)
Quarter: 2014Q2

REPORT INFORMATION
  Report Type: Spontaneous
  Country: US (occurrence: US)
  Receive Date: 20140519
  Receipt Date: 20140519
  Transmission Date: 20141212
  Serious: No
  Sender: FDA-Public Use
  Company Number: US-AMGEN INC.-USASP2014012749

PATIENT
  Age: 63 Year
  Sex: Female

DRUGS (5)
  1. PROLIA [Suspect]
     Indication: OSTEOPOROSIS POSTMENOPAUSAL
     Dosage: UNK
     Route: 065
     Dates: start: 201309
  2. SYNTHROID [Concomitant]
  3. BABY ASPIRIN [Concomitant]
  4. VITAMIN D                          /00107901/ [Concomitant]
  5. CALCIUM [Concomitant]

REACTIONS (7)
  - Muscle spasms [Recovered/Resolved]
  - Hypoaesthesia [Unknown]
  - Paraesthesia [Unknown]
  - Peripheral swelling [Unknown]
  - Limb discomfort [Recovered/Resolved]
  - Arthropathy [Unknown]
  - Pain in extremity [Recovered/Resolved]
